FAERS Safety Report 16927011 (Version 1)
Quarter: 2019Q4

REPORT INFORMATION
  Report Type: Spontaneous
  Country: US (occurrence: US)
  Receive Date: 20191016
  Receipt Date: 20191016
  Transmission Date: 20200122
  Serious: No
  Sender: FDA-Public Use
  Company Number: US-TEVA-2019-US-1122387

PATIENT
  Age: 73 Year
  Sex: Male

DRUGS (1)
  1. CARVEDILOL TABLETS 12.5MG [Suspect]
     Active Substance: CARVEDILOL

REACTIONS (2)
  - Dry mouth [Unknown]
  - Chapped lips [Unknown]
